FAERS Safety Report 11526969 (Version 1)
Quarter: 2015Q3

REPORT INFORMATION
  Report Type: Spontaneous
  Country: US (occurrence: US)
  Receive Date: 20150903
  Receipt Date: 20150903
  Transmission Date: 20151125
  Serious: No
  Sender: FDA-Public Use
  Company Number: US-ELI_LILLY_AND_COMPANY-US201309005633

PATIENT
  Age: 39 Year
  Sex: Female

DRUGS (2)
  1. CYMBALTA [Suspect]
     Active Substance: DULOXETINE HYDROCHLORIDE
     Indication: DEPRESSION
     Dosage: UNK, UNKNOWN (SEVERAL YEARS)
     Route: 065
     Dates: end: 201102
  2. CYMBALTA [Suspect]
     Active Substance: DULOXETINE HYDROCHLORIDE
     Dosage: UNK, UNKNOWN
     Route: 065
     Dates: start: 201302

REACTIONS (11)
  - Depression [Unknown]
  - Condition aggravated [Unknown]
  - Depressed mood [Unknown]
  - Stress [Unknown]
  - Feeling abnormal [Unknown]
  - Anger [Unknown]
  - Feeling drunk [Unknown]
  - Personality change [Unknown]
  - Negative thoughts [Unknown]
  - Fear [Unknown]
  - Anxiety [Unknown]

NARRATIVE: CASE EVENT DATE: 20130913
